FAERS Safety Report 10231874 (Version 2)
Quarter: 2014Q3

REPORT INFORMATION
  Report Type: Report from Study
  Country: US (occurrence: US)
  Receive Date: 20140612
  Receipt Date: 20140709
  Transmission Date: 20150326
  Serious: Yes (Hospitalization)
  Sender: FDA-Public Use
  Company Number: US-BIOGENIDEC-2014BI052555

PATIENT
  Age: 26 Year
  Sex: Male

DRUGS (1)
  1. TYSABRI [Suspect]
     Active Substance: NATALIZUMAB
     Indication: MULTIPLE SCLEROSIS
     Route: 042
     Dates: start: 20080813, end: 20140504

REACTIONS (2)
  - Herpes zoster [Not Recovered/Not Resolved]
  - Meningitis [Unknown]

NARRATIVE: CASE EVENT DATE: 20140527
